FAERS Safety Report 9747005 (Version 3)
Quarter: 2013Q4

REPORT INFORMATION
  Report Type: Spontaneous
  Country: US (occurrence: US)
  Receive Date: 20131211
  Receipt Date: 20131220
  Transmission Date: 20140711
  Serious: Yes (Hospitalization)
  Sender: FDA-Public Use
  Company Number: US-BAXTER-2013BAX049242

PATIENT
  Age: 64 Year
  Sex: Male

DRUGS (3)
  1. DIANEAL LOW CALCIUM [Suspect]
     Indication: RENAL FAILURE CHRONIC
     Dosage: 2 BAGS
     Route: 033
  2. DIANEAL LOW CALCIUM [Suspect]
     Indication: RENAL FAILURE CHRONIC
     Dosage: 2 BAGS
     Route: 033
  3. LISINOPRIL [Concomitant]
     Indication: HYPERTENSION

REACTIONS (5)
  - Cataract [Unknown]
  - Chest pain [Recovering/Resolving]
  - Blood potassium increased [Recovering/Resolving]
  - Hypertension [Recovering/Resolving]
  - Hypotension [Unknown]
